FAERS Safety Report 9760035 (Version 1)
Quarter: 2013Q4

REPORT INFORMATION
  Report Type: Spontaneous
  Country: US (occurrence: US)
  Receive Date: 20131216
  Receipt Date: 20131216
  Transmission Date: 20140711
  Serious: No
  Sender: FDA-Public Use
  Company Number: US-BIOGENIDEC-2013BI098866

PATIENT
  Age: 57 Year
  Sex: Female
  Weight: 90 kg

DRUGS (13)
  1. TECFIDERA [Suspect]
     Indication: PRODUCT USED FOR UNKNOWN INDICATION
     Route: 048
  2. LORTAB 5 [Concomitant]
  3. LEXAPRO [Concomitant]
  4. NEURONTIN [Concomitant]
  5. VALSART [Concomitant]
  6. CYCLOBENZAPRINE [Concomitant]
  7. MODAFINIL [Concomitant]
  8. AMANTADINE [Concomitant]
  9. ZANAFLEX [Concomitant]
  10. VITAMIN D3 [Concomitant]
  11. GLUTATHIONE [Concomitant]
  12. BABY ASPIRIN [Concomitant]
  13. OMEGA 3 [Concomitant]

REACTIONS (6)
  - Cystitis [Recovered/Resolved]
  - Fungal infection [Recovered/Resolved]
  - Rash [Recovered/Resolved]
  - Pruritus [Recovered/Resolved]
  - Flushing [Recovered/Resolved]
  - Abdominal pain upper [Recovered/Resolved]
